FAERS Safety Report 12069776 (Version 1)
Quarter: 2016Q1

REPORT INFORMATION
  Report Type: Spontaneous
  Country: IT (occurrence: IT)
  Receive Date: 20160211
  Receipt Date: 20160211
  Transmission Date: 20160526
  Serious: Yes (Death, Hospitalization)
  Sender: FDA-Public Use
  Company Number: IT-TEVA-631738ACC

PATIENT
  Age: 66 Year
  Sex: Female

DRUGS (5)
  1. NORTIMIL [Concomitant]
     Indication: DIURETIC THERAPY
  2. CARBOLITHIUM [Interacting]
     Active Substance: LITHIUM CARBONATE
     Dosage: 600 MILLIGRAM DAILY;
  3. TOFRANIL [Concomitant]
     Active Substance: IMIPRAMINE HYDROCHLORIDE
     Indication: DIURETIC THERAPY
  4. INDAPAMIDE. [Suspect]
     Active Substance: INDAPAMIDE
     Indication: DIURETIC THERAPY
     Dates: start: 2008
  5. CARBOLITHIUM [Interacting]
     Active Substance: LITHIUM CARBONATE
     Dosage: 300 MILLIGRAM DAILY;

REACTIONS (7)
  - Restlessness [Unknown]
  - Deep vein thrombosis [Fatal]
  - Drug interaction [Fatal]
  - Gastroenteritis [Unknown]
  - Pulmonary embolism [Fatal]
  - Akathisia [Unknown]
  - Toxicity to various agents [Fatal]

NARRATIVE: CASE EVENT DATE: 2008
